FAERS Safety Report 7153851-7 (Version None)
Quarter: 2010Q4

REPORT INFORMATION
  Report Type: 
  Country: None (occurrence: None)
  Receive Date: 20101213
  Receipt Date: 20101101
  Transmission Date: 20110411
  Serious: No
  Sender: FDA-Public Use
  Company Number: US-ABBOTT-10P-163-0676561-00

PATIENT
  Sex: Female
  Weight: 72.64 kg

DRUGS (17)
  1. MERIDIA [Suspect]
     Indication: DECREASED APPETITE
     Route: 048
     Dates: start: 20091101, end: 20100901
  2. APIDRA [Concomitant]
     Indication: TYPE 1 DIABETES MELLITUS
     Dosage: VIA INSULIN PUMP
     Route: 058
  3. LIPITOR [Concomitant]
     Indication: BLOOD CHOLESTEROL INCREASED
     Route: 048
  4. PREVACID [Concomitant]
     Indication: GASTRITIS
     Route: 048
  5. PREVACID [Concomitant]
     Indication: GASTROOESOPHAGEAL REFLUX DISEASE
  6. LISINOPRIL AND HYDROCHLOROTHIAZIDE [Concomitant]
     Indication: HYPERTENSION
     Dosage: 20/12.5- TWO IN ONE DAY
     Route: 048
  7. SINGULAIR [Concomitant]
     Indication: SEASONAL ALLERGY
     Route: 048
  8. ZOLOFT [Concomitant]
     Indication: MENOPAUSAL SYMPTOMS
     Route: 048
  9. SYNTHROID [Concomitant]
     Indication: HYPOTHYROIDISM
     Route: 048
  10. SYNTHROID [Concomitant]
     Indication: AUTOIMMUNE THYROIDITIS
  11. ADVAIR DISKUS 100/50 [Concomitant]
     Indication: ASTHMA
     Route: 055
  12. PRO AIRE [Concomitant]
     Indication: ASTHMA
     Dosage: RECUE INH- AS NEEDED
     Route: 055
  13. VERAMYST [Concomitant]
     Indication: RHINITIS ALLERGIC
     Dosage: 27.5  1 SPRAY EA NOSTRIL TWICE A DAY
     Route: 045
  14. IPRATROPIUM BROMIDE [Concomitant]
     Indication: RHINITIS ALLERGIC
     Dosage: .06  1 SPR EA NOSTRIL AT NIGHT
     Route: 045
  15. LUMIGAN [Concomitant]
     Indication: GLAUCOMA
     Dosage: 1 DROP OU DAILY
     Route: 047
  16. CRESTOR [Concomitant]
     Indication: BLOOD CHOLESTEROL INCREASED
  17. INSULIN [Concomitant]
     Indication: TYPE 1 DIABETES MELLITUS

REACTIONS (3)
  - DRUG INEFFECTIVE [None]
  - INCREASED APPETITE [None]
  - WEIGHT INCREASED [None]
